FAERS Safety Report 7553550-3 (Version None)
Quarter: 2011Q2

REPORT INFORMATION
  Report Type: 
  Country: None (occurrence: None)
  Receive Date: 20110617
  Receipt Date: 20110606
  Transmission Date: 20111010
  Serious: Yes (Other)
  Sender: FDA-Public Use
  Company Number: US-BAYER-201041644NA

PATIENT
  Age: 64 Year
  Sex: Male
  Weight: 86 kg

DRUGS (20)
  1. RAMIPRIL [Concomitant]
     Dosage: UNK
     Dates: start: 19700101, end: 20030101
  2. HESPAN IN EXCEL PLASTIC CONTAINER [Concomitant]
     Dosage: 500 ML, UNK
     Route: 042
     Dates: start: 20030228
  3. AMIODARONE HCL [Concomitant]
  4. INSULIN [Concomitant]
     Dosage: 20 U, NIGHTLY
     Route: 058
  5. DOPAMINE HCL [Concomitant]
     Dosage: 235 ML, UNK
     Route: 042
     Dates: start: 20030228
  6. NOREPINEPHRINE BITARTRATE [Concomitant]
     Dosage: 35 ML, Q1HR
     Route: 042
     Dates: start: 20030228
  7. DILTIAZEM [Concomitant]
  8. DIGOXIN [Concomitant]
  9. PRECEDEX [Concomitant]
     Dosage: 64 ML, UNK
     Route: 042
     Dates: start: 20030228
  10. PROTAMINE SULFATE [Concomitant]
     Dosage: 400 MG, UNK
     Route: 042
     Dates: start: 20030228
  11. ALBUMIN (HUMAN) [Concomitant]
     Dosage: 50 ML, UNK
     Route: 042
     Dates: start: 20030228
  12. METOPROLOL TARTRATE [Concomitant]
  13. NITROGLYCERIN [Concomitant]
  14. PANCURONIUM BROMIDE [Concomitant]
     Dosage: 8 MG, Q1HR
     Route: 042
     Dates: start: 20030228
  15. MIDAZOLAM HCL [Concomitant]
     Dosage: 3 MG, Q1HR
     Dates: start: 20030228
  16. NIPRIDE [Concomitant]
     Dosage: 62 ML, UNK
     Route: 042
     Dates: start: 20030228
  17. HEPARIN [Concomitant]
     Dosage: 55000 U, UNK
     Route: 042
     Dates: start: 20030228
  18. TRASYLOL [Suspect]
     Indication: CORONARY ARTERY BYPASS
     Dosage: 200 ML, UNK, LOADING DOSE
     Route: 042
     Dates: start: 20030228, end: 20030228
  19. TRASYLOL [Suspect]
     Dosage: 50 ML, Q1HR, X5HRS
     Route: 042
     Dates: start: 20030228, end: 20030228
  20. LEVOPHED [Concomitant]
     Dosage: 502 ML, UNK
     Route: 042
     Dates: start: 20030228

REACTIONS (10)
  - RENAL INJURY [None]
  - EMOTIONAL DISTRESS [None]
  - STRESS [None]
  - RENAL IMPAIRMENT [None]
  - UNEVALUABLE EVENT [None]
  - RENAL FAILURE [None]
  - ANXIETY [None]
  - FEAR [None]
  - PAIN [None]
  - INJURY [None]
